FAERS Safety Report 25926075 (Version 1)
Quarter: 2025Q4

REPORT INFORMATION
  Report Type: Spontaneous
  Country: EU (occurrence: EU)
  Receive Date: 20251015
  Receipt Date: 20251015
  Transmission Date: 20260117
  Serious: Yes (Death, Life-Threatening, Disabling, Congenital Anomaly)
  Sender: ELI LILLY AND COMPANY
  Company Number: EU-EMB-M202407837-1

PATIENT
  Sex: Female
  Weight: 0.34 kg

DRUGS (6)
  1. DULOXETINE HYDROCHLORIDE [Suspect]
     Active Substance: DULOXETINE HYDROCHLORIDE
     Indication: Anxiety disorder
     Dosage: 90 MG, DAILY
     Route: 064
     Dates: start: 202403, end: 202408
  2. DULOXETINE HYDROCHLORIDE [Suspect]
     Active Substance: DULOXETINE HYDROCHLORIDE
     Indication: Anxiety disorder
     Dosage: 90 MG, DAILY
     Route: 064
     Dates: start: 202403, end: 202408
  3. QUETIAPINE [Suspect]
     Active Substance: QUETIAPINE
     Indication: Anxiety disorder
     Dosage: 25 MG, DAILY
     Route: 064
     Dates: start: 202403, end: 202408
  4. QUETIAPINE [Suspect]
     Active Substance: QUETIAPINE
     Indication: Anxiety disorder
     Dosage: 25 MG, DAILY
     Route: 064
     Dates: start: 202403, end: 202408
  5. LEVOTHYROXINE SODIUM [Concomitant]
     Active Substance: LEVOTHYROXINE SODIUM
     Indication: Hypothyroidism
     Dosage: 100 UG, DAILY
     Route: 064
     Dates: start: 202403, end: 202408
  6. LEVOTHYROXINE SODIUM [Concomitant]
     Active Substance: LEVOTHYROXINE SODIUM
     Indication: Hypothyroidism
     Dosage: 100 UG, DAILY
     Route: 064
     Dates: start: 202403, end: 202408

REACTIONS (5)
  - Encephalocele [Fatal]
  - Cleft lip and palate [Not Recovered/Not Resolved]
  - Atrioventricular septal defect [Not Recovered/Not Resolved]
  - Single umbilical artery [Unknown]
  - Foetal exposure during pregnancy [Unknown]
